FAERS Safety Report 8480009-1 (Version None)
Quarter: 2012Q2

REPORT INFORMATION
  Report Type: 
  Country: None (occurrence: None)
  Receive Date: 20120629
  Receipt Date: 20120618
  Transmission Date: 20120825
  Serious: No
  Sender: FDA-Public Use
  Company Number: US-ASTRAZENECA-2012SE37236

PATIENT
  Age: 31 Year
  Sex: Male

DRUGS (9)
  1. NEXIUM [Suspect]
     Route: 048
  2. PRILOSEC [Suspect]
     Route: 048
  3. OMEPRAZOLE [Suspect]
     Route: 065
  4. ROLAIDS [Suspect]
     Route: 065
  5. PREVACID [Suspect]
     Route: 065
  6. GAVISCON [Suspect]
     Route: 065
  7. ZANTAC [Suspect]
     Route: 065
  8. CALCIUM CARBONATE [Suspect]
     Route: 065
  9. PEPCID AC [Suspect]
     Route: 065

REACTIONS (3)
  - GASTROOESOPHAGEAL REFLUX DISEASE [None]
  - DRUG DOSE OMISSION [None]
  - DRUG INEFFECTIVE [None]
